FAERS Safety Report 6999004-4 (Version None)
Quarter: 2010Q3

REPORT INFORMATION
  Report Type: 
  Country: None (occurrence: None)
  Receive Date: 20100920
  Receipt Date: 20100621
  Transmission Date: 20110219
  Serious: No
  Sender: FDA-Public Use
  Company Number: US-ASTRAZENECA-2010SE20056

PATIENT
  Age: 349 Month
  Sex: Male
  Weight: 108.9 kg

DRUGS (1)
  1. SEROQUEL XR [Suspect]
     Indication: MENTAL DISORDER
     Route: 048

REACTIONS (6)
  - DIARRHOEA HAEMORRHAGIC [None]
  - DRUG DOSE OMISSION [None]
  - EYE SWELLING [None]
  - FATIGUE [None]
  - INSOMNIA [None]
  - PARAESTHESIA [None]
